FAERS Safety Report 10312734 (Version 2)
Quarter: 2014Q3

REPORT INFORMATION
  Report Type: Spontaneous
  Country: JP (occurrence: None)
  Receive Date: 20140716
  Receipt Date: 20140821
  Transmission Date: 20150326
  Serious: Yes (Other)
  Sender: FDA-Public Use
  Company Number: JP-20140284

PATIENT
  Age: 77 Year
  Sex: Male

DRUGS (2)
  1. HISTOACRYL [Concomitant]
     Active Substance: ENBUCRILATE
  2. LIPIODOL ULTRA FLUID [Suspect]
     Active Substance: ETHIODIZED OIL
     Indication: THERAPEUTIC EMBOLISATION
     Dosage: UNK (1 IN 1D)
     Route: 013
     Dates: start: 20121018, end: 20121018

REACTIONS (4)
  - Skin graft [None]
  - No adverse event [None]
  - Skin ulcer [None]
  - Off label use [None]

NARRATIVE: CASE EVENT DATE: 20121018
